FAERS Safety Report 4979770-X (Version None)
Quarter: 2006Q2

REPORT INFORMATION
  Report Type: 
  Country: None (occurrence: None)
  Receive Date: 20060421
  Receipt Date: 20060113
  Transmission Date: 20061013
  Serious: Yes (Other)
  Sender: FDA-Public Use
  Company Number: IE-BOEHRINGER INGELHEIM PHARMACEUTICALS, INC.-2006-UK-00140IE

PATIENT
  Sex: Female

DRUGS (2)
  1. MICARDIS TABLETS (7/14/5-6) [Suspect]
     Indication: HYPERTENSION
     Dosage: 40 MG DAILY
     Route: 048
     Dates: start: 20060105, end: 20060109
  2. ENTROVEIN [Concomitant]
     Indication: HYPOTHYROIDISM
     Route: 048
     Dates: start: 20051208

REACTIONS (2)
  - CHEST DISCOMFORT [None]
  - DYSPNOEA [None]
